FAERS Safety Report 6593064-0 (Version None)
Quarter: 2010Q1

REPORT INFORMATION
  Report Type: 
  Country: None (occurrence: None)
  Receive Date: 20100222
  Receipt Date: 20100212
  Transmission Date: 20100710
  Serious: Yes (Other)
  Sender: FDA-Public Use
  Company Number: ES-B.I. PHARMACEUTICALS,INC./RIDGEFIELD-2010-ES-00040ES

PATIENT
  Sex: Female
  Weight: 80 kg

DRUGS (3)
  1. MICARDIS HCT [Suspect]
     Indication: HYPERTENSION
     Dosage: 80 MG TELMISARTAN/12,5 MG HIDROCLOROTIAZIDA
     Route: 048
  2. ORFIDAL [Concomitant]
     Indication: INSOMNIA
     Dosage: 1 MG
     Route: 048
  3. OMEPRAZOLE [Concomitant]
     Indication: GASTRITIS
     Dosage: 20 MG
     Route: 048

REACTIONS (2)
  - NERVOUSNESS [None]
  - RESTLESSNESS [None]
